FAERS Safety Report 25263093 (Version 1)
Quarter: 2025Q2

REPORT INFORMATION
  Report Type: Report from Study
  Country: US (occurrence: US)
  Receive Date: 20250502
  Receipt Date: 20250502
  Transmission Date: 20250717
  Serious: Yes (Other)
  Sender: GILEAD
  Company Number: US-GILEAD-2025-0712190

PATIENT
  Age: 35 Year
  Sex: Female

DRUGS (20)
  1. AZTREONAM LYSINE [Suspect]
     Active Substance: AZTREONAM LYSINE
     Indication: Cystic fibrosis
     Dosage: INHALE 1 VIAL (75 MG) VIA ALTERA NEBULIZER THREE TIMES DAILY FOR 28 DAYS ON AND 28 DAYS OFF
     Route: 055
     Dates: start: 20160630
  2. AMLODIPINE [Concomitant]
     Active Substance: AMLODIPINE BESYLATE
  3. B COMPLEX [BIOTIN;CALCIUM PANTOTHENATE;CHOLINE BITARTRATE;CYANOCOBALAM [Concomitant]
  4. BIOTIN [Concomitant]
     Active Substance: BIOTIN
  5. BUPROPION [Concomitant]
     Active Substance: BUPROPION
  6. CITRICAL [CALCIUM CARBONATE] [Concomitant]
  7. DUPIXENT [Concomitant]
     Active Substance: DUPILUMAB
  8. MIRTAZAPINE [Concomitant]
     Active Substance: MIRTAZAPINE
  9. MOTEGRITY [Concomitant]
     Active Substance: PRUCALOPRIDE SUCCINATE
  10. PANTOPRAZOLE [Concomitant]
     Active Substance: PANTOPRAZOLE
  11. PREDNISONE [Concomitant]
     Active Substance: PREDNISONE
  12. SULFAMETHOXAZOLE\TRIMETHOPRIM [Concomitant]
     Active Substance: SULFAMETHOXAZOLE\TRIMETHOPRIM
  13. TACROLIMUS [Concomitant]
     Active Substance: TACROLIMUS
  14. TOBRAMYCIN [Concomitant]
     Active Substance: TOBRAMYCIN
  15. VALACYCLOVIR HYDROCHLORIDE [Concomitant]
     Active Substance: VALACYCLOVIR HYDROCHLORIDE
  16. VALGANCICLOVIR [Concomitant]
     Active Substance: VALGANCICLOVIR
  17. VITAMIN C [Concomitant]
     Active Substance: ASCORBIC ACID
  18. CHOLECALCIFEROL [Concomitant]
     Active Substance: CHOLECALCIFEROL
  19. WARFARIN [Concomitant]
     Active Substance: WARFARIN
  20. ZENPEP [Concomitant]
     Active Substance: PANCRELIPASE AMYLASE\PANCRELIPASE LIPASE\PANCRELIPASE PROTEASE

REACTIONS (1)
  - Lung transplant [Unknown]
